FAERS Safety Report 20598504 (Version 2)
Quarter: 2022Q2

REPORT INFORMATION
  Report Type: Spontaneous
  Country: JP (occurrence: JP)
  Receive Date: 20220315
  Receipt Date: 20220421
  Transmission Date: 20220721
  Serious: Yes (Life-Threatening, Other)
  Sender: FDA-Public Use
  Company Number: JP-MSD-M2022-06878

PATIENT
  Sex: Male
  Weight: 51 kg

DRUGS (11)
  1. MOLNUPIRAVIR [Suspect]
     Active Substance: MOLNUPIRAVIR
     Indication: COVID-19 treatment
     Dosage: 800 MILLIGRAM, BID
     Route: 048
     Dates: start: 20220217, end: 20220217
  2. COLCHICINE [Concomitant]
     Active Substance: COLCHICINE
     Indication: Brucellosis
     Dosage: 0.5 MILLIGRAM, QD
     Route: 048
     Dates: start: 201010
  3. LANSOPRAZOLE [Concomitant]
     Active Substance: LANSOPRAZOLE
     Indication: Prophylaxis against gastrointestinal ulcer
     Dosage: 15 MILLIGRAM, QD
     Route: 048
     Dates: start: 202110
  4. METHYLCOBALAMIN [Concomitant]
     Active Substance: METHYLCOBALAMIN
     Indication: Guillain-Barre syndrome
     Dosage: 500 MILLIGRAM, TID
     Route: 048
     Dates: start: 202110
  5. METFORMIN HYDROCHLORIDE [Concomitant]
     Active Substance: METFORMIN HYDROCHLORIDE
     Indication: Diabetes mellitus
     Dosage: 250 MILLIGRAM, TID
     Route: 048
     Dates: start: 202110
  6. LINAGLIPTIN [Concomitant]
     Active Substance: LINAGLIPTIN
     Indication: Diabetes mellitus
     Dosage: 5 MILLIGRAM, QD
     Route: 048
     Dates: start: 202110
  7. HERBALS [Concomitant]
     Active Substance: HERBALS
     Indication: Delirium
     Dosage: 2.5 MILLIGRAM, TID
     Route: 048
     Dates: start: 202110
  8. RIVASTIGMINE [Concomitant]
     Active Substance: RIVASTIGMINE
     Indication: Dementia
     Dosage: 18 MILLIGRAM, QD
     Dates: start: 202110
  9. ALENDRONATE [Concomitant]
     Active Substance: ALENDRONATE SODIUM
     Indication: Osteoporosis
     Dosage: 3.5 MILLIGRAM, QW
     Route: 048
     Dates: start: 202110
  10. PREDONINE [Concomitant]
     Active Substance: PREDNISOLONE
     Indication: Brucellosis
     Dosage: 5 MILLIGRAM, QD
     Route: 048
     Dates: start: 202110
  11. BENSERAZIDE HYDROCHLORIDE\LEVODOPA [Concomitant]
     Active Substance: BENSERAZIDE HYDROCHLORIDE\LEVODOPA
     Indication: Parkinson^s disease
     Dosage: 3 DOSAGE FORM, TID
     Route: 048
     Dates: start: 202110

REACTIONS (3)
  - Pneumonia bacterial [Unknown]
  - COVID-19 [Not Recovered/Not Resolved]
  - Product complaint [Unknown]

NARRATIVE: CASE EVENT DATE: 20220101
